FAERS Safety Report 11614892 (Version 1)
Quarter: 2015Q4

REPORT INFORMATION
  Report Type: Spontaneous
  Country: US (occurrence: US)
  Receive Date: 20151009
  Receipt Date: 20151009
  Transmission Date: 20160304
  Serious: No
  Sender: FDA-Public Use
  Company Number: US-009507513-1510USA001099

PATIENT
  Age: 20 Year
  Sex: Female
  Weight: 77.98 kg

DRUGS (1)
  1. IMPLANON [Suspect]
     Active Substance: ETONOGESTREL
     Indication: CONTRACEPTION
     Dosage: EVERY THREE YEARS, LEFT ARM

REACTIONS (5)
  - Anger [Recovering/Resolving]
  - Mood swings [Recovering/Resolving]
  - Breast feeding [Unknown]
  - Depression [Recovering/Resolving]
  - Headache [Recovering/Resolving]
